FAERS Safety Report 19092121 (Version 2)
Quarter: 2021Q2

REPORT INFORMATION
  Report Type: Report from Study
  Country: US (occurrence: US)
  Receive Date: 20210405
  Receipt Date: 20210609
  Transmission Date: 20210717
  Serious: Yes (Other)
  Sender: FDA-Public Use
  Company Number: US-GLAXOSMITHKLINE-US2021AMR071983

PATIENT
  Age: 78 Year
  Sex: Male

DRUGS (1)
  1. BELANTAMAB MAFODOTIN. [Suspect]
     Active Substance: BELANTAMAB MAFODOTIN
     Indication: PLASMA CELL MYELOMA
     Dosage: 226.8 MG, Z, EVERY 3 WEEKS
     Dates: start: 20210215, end: 20210308

REACTIONS (8)
  - Vision blurred [Unknown]
  - Corneal dystrophy [Unknown]
  - Keratopathy [Unknown]
  - Foreign body sensation in eyes [Unknown]
  - Dry eye [Unknown]
  - Condition aggravated [Unknown]
  - Plasma cell myeloma [Unknown]
  - Visual acuity reduced [Unknown]

NARRATIVE: CASE EVENT DATE: 20210313
